FAERS Safety Report 8212753-5 (Version None)
Quarter: 2012Q1

REPORT INFORMATION
  Report Type: 
  Country: None (occurrence: None)
  Receive Date: 20120315
  Receipt Date: 20120229
  Transmission Date: 20120608
  Serious: No
  Sender: FDA-Public Use
  Company Number: US-ENDO PHARMACEUTICALS INC.-OPER20120258

PATIENT
  Sex: Female
  Weight: 60.836 kg

DRUGS (4)
  1. OPANA ER [Suspect]
     Indication: MUSCULOSKELETAL PAIN
     Route: 048
     Dates: start: 20120225
  2. OPANA ER [Suspect]
     Route: 048
     Dates: end: 20120224
  3. OPANA ER [Suspect]
     Indication: MUSCULOSKELETAL PAIN
     Route: 048
     Dates: end: 20120224
  4. OXYCODONE HCL 15MG [Concomitant]
     Indication: MUSCULOSKELETAL PAIN
     Route: 048

REACTIONS (1)
  - DRUG INEFFECTIVE [None]
